FAERS Safety Report 7083458-1 (Version None)
Quarter: 2010Q4

REPORT INFORMATION
  Report Type: 
  Country: None (occurrence: None)
  Receive Date: 20101104
  Receipt Date: 20101025
  Transmission Date: 20110411
  Serious: Yes (Other)
  Sender: FDA-Public Use
  Company Number: B0681051A

PATIENT
  Age: 22 Year
  Sex: Female

DRUGS (1)
  1. BETNOVATE [Suspect]
     Indication: SKIN DISORDER
     Route: 065

REACTIONS (2)
  - ACNE [None]
  - INTENTIONAL DRUG MISUSE [None]
